FAERS Safety Report 6290846 (Version 5)
Quarter: 2021Q2

REPORT INFORMATION
  Report Type: Report from Study
  Country: JP (occurrence: JP)
  Receive Date: 20070418
  Receipt Date: 20210519
  Transmission Date: 20210717
  Serious: Yes (Hospitalization, Other)
  Sender: FDA-Public Use
  Company Number: PHHO2007JP06260

PATIENT
  Age: 75 Year
  Sex: Female
  Weight: 48 kg

DRUGS (6)
  1. FUROSEMIDE. [Concomitant]
     Active Substance: FUROSEMIDE
     Indication: PRODUCT USED FOR UNKNOWN INDICATION
     Dosage: UNK
     Route: 065
  2. IMATINIB TAB [Suspect]
     Active Substance: IMATINIB
     Dosage: 200 MG, QD
     Route: 048
     Dates: start: 20070324
  3. FUROSEMIDE. [Concomitant]
     Active Substance: FUROSEMIDE
     Dosage: 20 MG, QD
     Route: 065
  4. IMATINIB TAB [Suspect]
     Active Substance: IMATINIB
     Indication: GASTROINTESTINAL STROMAL TUMOUR
     Dosage: 400 MG, QD
     Route: 048
     Dates: start: 20030801, end: 20030918
  5. IMATINIB TAB [Suspect]
     Active Substance: IMATINIB
     Indication: METASTASES TO LIVER
     Dosage: 400 MG, QD
     Route: 048
     Dates: start: 20030926, end: 20070323
  6. PREDONINE [Suspect]
     Active Substance: PREDNISOLONE
     Indication: PRODUCT USED FOR UNKNOWN INDICATION
     Dosage: UNK
     Route: 065

REACTIONS (14)
  - Hypothyroidism [Recovering/Resolving]
  - Malaise [Recovering/Resolving]
  - Pleural effusion [Recovering/Resolving]
  - Anaemia [Recovering/Resolving]
  - Rash [Recovering/Resolving]
  - Hypoproteinaemia [Recovering/Resolving]
  - Renal disorder [Not Recovered/Not Resolved]
  - Generalised oedema [Recovering/Resolving]
  - Hypoaesthesia [Unknown]
  - White blood cell count decreased [Recovered/Resolved]
  - Oedema [Recovering/Resolving]
  - Pain in extremity [Unknown]
  - Intervertebral disc protrusion [Unknown]
  - Sciatica [Unknown]

NARRATIVE: CASE EVENT DATE: 20030801
